FAERS Safety Report 17098618 (Version 1)
Quarter: 2019Q4

REPORT INFORMATION
  Report Type: Spontaneous
  Country: US (occurrence: US)
  Receive Date: 20191105
  Receipt Date: 20191105
  Transmission Date: 20200122
  Serious: Yes (Hospitalization)
  Sender: FDA-Public Use
  Company Number: None

PATIENT
  Age: 4 Year
  Sex: Female

DRUGS (1)
  1. NEULASTA [Suspect]
     Active Substance: PEGFILGRASTIM
     Indication: ADRENAL GLAND CANCER
     Route: 058
     Dates: start: 20190921

REACTIONS (2)
  - Syringe issue [None]
  - Product dose omission [None]

NARRATIVE: CASE EVENT DATE: 20191105
